FAERS Safety Report 5928656-2 (Version None)
Quarter: 2008Q3

REPORT INFORMATION
  Report Type: 
  Country: None (occurrence: None)
  Receive Date: 20080923
  Receipt Date: 20080116
  Transmission Date: 20090109
  Serious: Yes (Hospitalization, Other)
  Sender: FDA-Public Use
  Company Number: WAES 0801USA03638

PATIENT
  Age: 38 Year
  Sex: Male
  Weight: 75.7507 kg

DRUGS (2)
  1. VYTORIN [Suspect]
     Indication: BLOOD CHOLESTEROL INCREASED
     Dosage: 10-20 MG/DAILY/PO
     Route: 048
     Dates: end: 20080108
  2. VYTORIN [Suspect]
     Indication: HYPERLIPIDAEMIA
     Dosage: 10-20 MG/DAILY/PO
     Route: 048
     Dates: end: 20080108

REACTIONS (1)
  - RHABDOMYOLYSIS [None]
